FAERS Safety Report 5055205-6 (Version None)
Quarter: 2006Q3

REPORT INFORMATION
  Report Type: 
  Country: None (occurrence: None)
  Receive Date: 20060714
  Receipt Date: 20060628
  Transmission Date: 20061208
  Serious: Yes (Hospitalization)
  Sender: FDA-Public Use
  Company Number: WAES 0403USA02322

PATIENT
  Age: 34 Year
  Sex: Female

DRUGS (42)
  1. CRIXIVAN [Suspect]
     Indication: HIV INFECTION
     Dosage: SEE IMAGE
     Route: 048
     Dates: start: 19980831, end: 19980909
  2. CRIXIVAN [Suspect]
     Indication: HIV INFECTION
     Dosage: SEE IMAGE
     Route: 048
     Dates: start: 20000310, end: 20001027
  3. EFAVIRENZ [Suspect]
     Indication: HIV INFECTION
     Dosage: SEE IMAGE
     Route: 048
     Dates: start: 20000310, end: 20001027
  4. EFAVIRENZ [Suspect]
     Indication: HIV INFECTION
     Dosage: SEE IMAGE
     Route: 048
     Dates: start: 20010130
  5. RITONAVIR [Suspect]
     Indication: HIV INFECTION
     Dosage: 400 MG/DAILY
     Route: 048
     Dates: start: 20000310, end: 20001027
  6. ABACAVIR SULFATE [Suspect]
     Indication: HIV INFECTION
     Dosage: 300 MG/BID
     Route: 048
     Dates: start: 20010130
  7. LOPINAVIR (+) RITONAVIR [Suspect]
     Indication: HIV INFECTION
     Dosage: 6 CAPSULE/DAILY
     Route: 048
     Dates: start: 20010130
  8. CLARITHROMYCIN [Suspect]
     Indication: MYCOBACTERIUM AVIUM COMPLEX INFECTION
     Dosage: SEE IMAGE
     Route: 048
     Dates: start: 19981008, end: 19981201
  9. CLARITHROMYCIN [Suspect]
     Indication: MYCOBACTERIUM AVIUM COMPLEX INFECTION
     Dosage: SEE IMAGE
     Route: 048
     Dates: start: 20001028
  10. ETHAMBUTOL HCL [Suspect]
     Indication: MYCOBACTERIUM AVIUM COMPLEX INFECTION
     Dosage: SEE IMAGE
     Route: 048
     Dates: start: 19981025, end: 19981201
  11. ETHAMBUTOL HCL [Suspect]
     Indication: MYCOBACTERIUM AVIUM COMPLEX INFECTION
     Dosage: SEE IMAGE
     Route: 048
     Dates: start: 19981212, end: 19990614
  12. ETHAMBUTOL HCL [Suspect]
     Indication: MYCOBACTERIUM AVIUM COMPLEX INFECTION
     Dosage: SEE IMAGE
     Route: 048
     Dates: start: 20001028, end: 20010101
  13. SULFAMETHOXAZOLE + TRIMETHOPRIM [Suspect]
     Indication: ALLERGENIC DESENSITISATION PROCEDURE
     Dosage: SEE IMAGE
     Route: 048
     Dates: start: 20001219, end: 20001219
  14. SULFAMETHOXAZOLE + TRIMETHOPRIM [Suspect]
     Indication: PNEUMOCYSTIS JIROVECI INFECTION
     Dosage: SEE IMAGE
     Route: 048
     Dates: start: 20001219, end: 20001219
  15. SULFAMETHOXAZOLE + TRIMETHOPRIM [Suspect]
     Indication: ALLERGENIC DESENSITISATION PROCEDURE
     Dosage: SEE IMAGE
     Route: 048
     Dates: start: 20001220, end: 20001220
  16. SULFAMETHOXAZOLE + TRIMETHOPRIM [Suspect]
     Indication: PNEUMOCYSTIS JIROVECI INFECTION
     Dosage: SEE IMAGE
     Route: 048
     Dates: start: 20001220, end: 20001220
  17. SULFAMETHOXAZOLE + TRIMETHOPRIM [Suspect]
     Indication: ALLERGENIC DESENSITISATION PROCEDURE
     Dosage: SEE IMAGE
     Route: 048
     Dates: start: 20001221, end: 20001221
  18. SULFAMETHOXAZOLE + TRIMETHOPRIM [Suspect]
     Indication: PNEUMOCYSTIS JIROVECI INFECTION
     Dosage: SEE IMAGE
     Route: 048
     Dates: start: 20001221, end: 20001221
  19. SULFAMETHOXAZOLE + TRIMETHOPRIM [Suspect]
     Indication: ALLERGENIC DESENSITISATION PROCEDURE
     Dosage: SEE IMAGE
     Route: 048
     Dates: start: 20001222, end: 20001222
  20. SULFAMETHOXAZOLE + TRIMETHOPRIM [Suspect]
     Indication: PNEUMOCYSTIS JIROVECI INFECTION
     Dosage: SEE IMAGE
     Route: 048
     Dates: start: 20001222, end: 20001222
  21. SULFAMETHOXAZOLE + TRIMETHOPRIM [Suspect]
     Indication: ALLERGENIC DESENSITISATION PROCEDURE
     Dosage: SEE IMAGE
     Route: 048
     Dates: start: 20001223, end: 20010112
  22. SULFAMETHOXAZOLE + TRIMETHOPRIM [Suspect]
     Indication: PNEUMOCYSTIS JIROVECI INFECTION
     Dosage: SEE IMAGE
     Route: 048
     Dates: start: 20001223, end: 20010112
  23. SULFAMETHOXAZOLE + TRIMETHOPRIM [Suspect]
     Indication: ALLERGENIC DESENSITISATION PROCEDURE
     Dosage: SEE IMAGE
     Route: 048
     Dates: start: 20010113, end: 20020319
  24. SULFAMETHOXAZOLE + TRIMETHOPRIM [Suspect]
     Indication: PNEUMOCYSTIS JIROVECI INFECTION
     Dosage: SEE IMAGE
     Route: 048
     Dates: start: 20010113, end: 20020319
  25. FOSCAVIR (FOSCARNET NA) [Suspect]
     Indication: CYTOMEGALOVIRUS INFECTION
     Dosage: SEE IMAGE
     Route: 042
     Dates: start: 20000125, end: 20000214
  26. FOSCAVIR (FOSCARNET NA) [Suspect]
     Indication: CYTOMEGALOVIRUS INFECTION
     Dosage: SEE IMAGE
     Route: 042
     Dates: start: 20000215, end: 20000303
  27. FOSCAVIR (FOSCARNET NA) [Suspect]
     Indication: CYTOMEGALOVIRUS INFECTION
     Dosage: SEE IMAGE
     Route: 042
     Dates: start: 20000404, end: 20000406
  28. FOSCAVIR (FOSCARNET NA) [Suspect]
     Indication: CYTOMEGALOVIRUS INFECTION
     Dosage: SEE IMAGE
     Route: 042
     Dates: start: 20000407, end: 20000426
  29. DENOSINE           (GANCICLOVIR SODIUM) [Suspect]
     Indication: CYTOMEGALOVIRUS INFECTION
     Dosage: 10 MG/KG/DAILY
     Route: 042
     Dates: start: 20000215, end: 20000306
  30. LACTEC D [Concomitant]
  31. SOLITA T-3 [Concomitant]
  32. CIPROFLOXACIN HYDROCHLORIDE [Concomitant]
  33. DEXTROSE [Concomitant]
  34. HYDROCORTISONE TAB [Concomitant]
  35. HYDROCORTISONE SODIUM PHOSPHATE [Concomitant]
  36. HYDROXYZINE HYDROCHLORIDE [Concomitant]
  37. LAMIVUDINE [Concomitant]
  38. MORPHINE HCL [Concomitant]
  39. PREDNISOLONE [Concomitant]
  40. RIFAMPIN [Concomitant]
  41. ROXITHROMYCIN [Concomitant]
  42. ZIDOVUDINE [Concomitant]

REACTIONS (23)
  - ANOREXIA [None]
  - BACK PAIN [None]
  - BLOOD ALKALINE PHOSPHATASE INCREASED [None]
  - BLOOD CHLORIDE DECREASED [None]
  - BLOOD CHOLESTEROL INCREASED [None]
  - BLOOD CREATININE DECREASED [None]
  - BLOOD SODIUM DECREASED [None]
  - BLOOD TRIGLYCERIDES INCREASED [None]
  - CALCULUS URINARY [None]
  - CERVIX OPERATION [None]
  - CREATININE RENAL CLEARANCE DECREASED [None]
  - DEHYDRATION [None]
  - DIZZINESS [None]
  - DRUG INEFFECTIVE [None]
  - ELECTROLYTE IMBALANCE [None]
  - EYE OPERATION [None]
  - GAMMA-GLUTAMYLTRANSFERASE INCREASED [None]
  - HAEMATURIA [None]
  - HIV WASTING SYNDROME [None]
  - HYPERLIPIDAEMIA [None]
  - NAUSEA [None]
  - VOMITING [None]
  - WEIGHT DECREASED [None]
